FAERS Safety Report 8094798-1 (Version None)
Quarter: 2012Q1

REPORT INFORMATION
  Report Type: 
  Country: None (occurrence: None)
  Receive Date: 20120129
  Receipt Date: 20111212
  Transmission Date: 20120608
  Serious: No
  Sender: FDA-Public Use
  Company Number: US-ABBOTT-11P-163-0882596-00

PATIENT
  Age: 58 Year
  Sex: Female

DRUGS (15)
  1. TRAMADOL HCL [Concomitant]
     Indication: PAIN
     Dosage: 1-2 TABLETS EVERY 6 HOURS AS NEEDED
     Route: 048
  2. LOVASTATIN [Concomitant]
     Indication: BLOOD CHOLESTEROL INCREASED
     Route: 048
  3. PREMARIN [Concomitant]
     Indication: HORMONE REPLACEMENT THERAPY
     Route: 048
  4. GABAPENTIN [Concomitant]
     Indication: FIBROMYALGIA
  5. ELAVIL [Concomitant]
     Indication: INSOMNIA
     Route: 048
  6. LISINOPRIL AND HYDROCHLOROTHIAZIDE [Concomitant]
     Indication: HYPERTENSION
     Dosage: 10/12.5 MG
     Route: 048
  7. FLEXERIL [Concomitant]
     Indication: FIBROMYALGIA
  8. SYNTHROID [Concomitant]
     Indication: HYPOTHYROIDISM
  9. TRILIPIX [Concomitant]
     Indication: BLOOD CHOLESTEROL INCREASED
     Route: 048
  10. DEXILANT [Concomitant]
     Indication: GASTROOESOPHAGEAL REFLUX DISEASE
     Route: 048
  11. FLEXERIL [Concomitant]
     Indication: MUSCLE SPASMS
     Route: 048
  12. GABAPENTIN [Concomitant]
     Indication: NEUROPATHY PERIPHERAL
     Route: 048
  13. HUMIRA [Suspect]
     Indication: RHEUMATOID ARTHRITIS
     Dates: start: 20111025
  14. SINEMET [Concomitant]
     Indication: RESTLESS LEGS SYNDROME
     Dosage: 25/100 MG - AT BEDTIME
  15. PLAQUENIL [Concomitant]
     Indication: RHEUMATOID ARTHRITIS
     Route: 048

REACTIONS (1)
  - ARTHRALGIA [None]
